FAERS Safety Report 9842156 (Version 1)
Quarter: 2014Q1

REPORT INFORMATION
  Report Type: Spontaneous
  Country: US (occurrence: None)
  Receive Date: 20140123
  Receipt Date: 20140123
  Transmission Date: 20141002
  Serious: Yes (Other)
  Sender: FDA-Public Use
  Company Number: None

PATIENT
  Age: 85 Year
  Sex: Male

DRUGS (6)
  1. IMBRUVICA [Suspect]
     Indication: MANTLE CELL LYMPHOMA
     Route: 048
     Dates: start: 20131226, end: 20140120
  2. ASPIRIN [Concomitant]
  3. DOXAZOSIN [Concomitant]
  4. OMEPRAZOLE [Concomitant]
  5. PREDNISONE [Concomitant]
  6. TAMAZEPAM [Concomitant]

REACTIONS (4)
  - Oedema peripheral [None]
  - Dyspnoea [None]
  - Gastrointestinal hypomotility [None]
  - Infrequent bowel movements [None]
